FAERS Safety Report 8460011-6 (Version None)
Quarter: 2012Q2

REPORT INFORMATION
  Report Type: 
  Country: None (occurrence: None)
  Receive Date: 20120622
  Receipt Date: 20120619
  Transmission Date: 20120825
  Serious: Yes (Life-Threatening, Hospitalization)
  Sender: FDA-Public Use
  Company Number: GXKR2012DE002028

PATIENT
  Age: 49 Year
  Sex: Female
  Weight: 69 kg

DRUGS (1)
  1. LOSARTAN POTASSIUM [Suspect]
     Dosage: 100 MG, QD
     Route: 048
     Dates: end: 20120522

REACTIONS (10)
  - BLOOD PRESSURE DECREASED [None]
  - HYPERTENSION [None]
  - MUSCLE TWITCHING [None]
  - CYANOSIS [None]
  - VOMITING [None]
  - ASTHENIA [None]
  - BREATH SOUNDS [None]
  - COUGH [None]
  - PALPITATIONS [None]
  - ABNORMAL FAECES [None]
